FAERS Safety Report 10148812 (Version 3)
Quarter: 2017Q4

REPORT INFORMATION
  Report Type: Report from Study
  Country: US (occurrence: US)
  Receive Date: 20140502
  Receipt Date: 20171220
  Transmission Date: 20180320
  Serious: Yes (Life-Threatening, Other)
  Sender: FDA-Public Use
  Company Number: US-ROCHE-1388610

PATIENT
  Sex: Female

DRUGS (11)
  1. XOLAIR [Suspect]
     Active Substance: OMALIZUMAB
     Route: 058
     Dates: start: 201608
  2. XOLAIR [Suspect]
     Active Substance: OMALIZUMAB
     Route: 058
  3. EFFEXOR XR [Concomitant]
     Active Substance: VENLAFAXINE HYDROCHLORIDE
  4. AMBIEN [Concomitant]
     Active Substance: ZOLPIDEM TARTRATE
  5. XANAX [Concomitant]
     Active Substance: ALPRAZOLAM
  6. NAPROSYN [Suspect]
     Active Substance: NAPROXEN
     Indication: PRODUCT USED FOR UNKNOWN INDICATION
     Route: 065
  7. XYZAL [Concomitant]
     Active Substance: LEVOCETIRIZINE DIHYDROCHLORIDE
  8. XOLAIR [Suspect]
     Active Substance: OMALIZUMAB
     Indication: ASTHMA
     Route: 058
     Dates: start: 2003, end: 2009
  9. SINGULAIR [Concomitant]
     Active Substance: MONTELUKAST SODIUM
  10. CELEBREX [Concomitant]
     Active Substance: CELECOXIB
  11. XOLAIR [Suspect]
     Active Substance: OMALIZUMAB
     Route: 058

REACTIONS (10)
  - Asthma [Not Recovered/Not Resolved]
  - Migraine [Not Recovered/Not Resolved]
  - Headache [Unknown]
  - Apparent death [Unknown]
  - Asthma [Unknown]
  - Intracranial pressure increased [Not Recovered/Not Resolved]
  - Poor quality sleep [Unknown]
  - Lung disorder [Unknown]
  - Drug hypersensitivity [Unknown]
  - Malaise [Not Recovered/Not Resolved]
